FAERS Safety Report 7787040-X (Version None)
Quarter: 2011Q3

REPORT INFORMATION
  Report Type: 
  Country: None (occurrence: None)
  Receive Date: 20110929
  Receipt Date: 20110916
  Transmission Date: 20111222
  Serious: Yes (Hospitalization)
  Sender: FDA-Public Use
  Company Number: US-BAYER-2011-026664

PATIENT
  Age: 21 Year
  Sex: Female
  Weight: 52.608 kg

DRUGS (2)
  1. YAZ [Suspect]
     Indication: MENSTRUAL CYCLE MANAGEMENT
     Dosage: UNK
     Route: 048
     Dates: start: 20071001, end: 20090401
  2. YASMIN [Suspect]
     Indication: ABDOMINAL PAIN LOWER
     Dosage: UNK
     Route: 048
     Dates: start: 20070801, end: 20071001

REACTIONS (10)
  - BILIARY COLIC [None]
  - GASTRIC DISORDER [None]
  - CHOLECYSTITIS CHRONIC [None]
  - PAIN [None]
  - EMOTIONAL DISTRESS [None]
  - HEPATOBILIARY SCAN ABNORMAL [None]
  - INJURY [None]
  - DYSPEPSIA [None]
  - GALLBLADDER DISORDER [None]
  - ABDOMINAL PAIN [None]
